FAERS Safety Report 15296549 (Version 11)
Quarter: 2020Q3

REPORT INFORMATION
  Report Type: Report from Study
  Country: DE (occurrence: DE)
  Receive Date: 20180820
  Receipt Date: 20181116
  Transmission Date: 20201105
  Serious: Yes (Death, Hospitalization)
  Sender: FDA-Public Use
  Company Number: DE-JNJFOC-20180819734

PATIENT
  Age: 7 Decade
  Sex: Male
  Weight: 115 kg

DRUGS (3)
  1. TRABECTEDIN [Suspect]
     Active Substance: TRABECTEDIN
     Route: 042
  2. TRABECTEDIN [Suspect]
     Active Substance: TRABECTEDIN
     Indication: SARCOMA METASTATIC
     Dosage: CYCLE 2 DAY 1
     Route: 042
     Dates: start: 20180717, end: 20180807
  3. TRABECTEDIN [Suspect]
     Active Substance: TRABECTEDIN
     Route: 042

REACTIONS (3)
  - Acute kidney injury [Not Recovered/Not Resolved]
  - Transaminases increased [Not Recovered/Not Resolved]
  - Neutropenic sepsis [Fatal]

NARRATIVE: CASE EVENT DATE: 20180813
